FAERS Safety Report 9508475 (Version 1)
Quarter: 2013Q1

REPORT INFORMATION
  Report Type: Spontaneous
  Country: US (occurrence: None)
  Receive Date: 20130305
  Receipt Date: 20130305
  Transmission Date: 20140127
  Serious: Yes (Other)
  Sender: FDA-Public Use
  Company Number: 163-21880-12083263

PATIENT
  Age: 67 Year
  Sex: Female
  Weight: 81.65 kg

DRUGS (14)
  1. REVLIMID (LENALIDOMIDE) (CAPSULES) [Suspect]
     Indication: PLASMA CELL MYELOMA
     Route: 048
     Dates: start: 20110629
  2. ADVIL (IBUPROFEN) [Concomitant]
  3. ATENOLOL [Concomitant]
  4. CENTRUM SILVER [Concomitant]
  5. DEXILANT (DEXLANSOPRAZOLE) [Concomitant]
  6. GABAPENTIN [Concomitant]
  7. HYDROCHLOROTHIAZIDE WITH TRIAMTERENE (DYAZIDE) [Concomitant]
  8. LEVOTHYROXIN (LEVOTHYROXINE SODIUM) [Concomitant]
  9. ACETAMINOPHEN\HYDROCODONE BITARTRATE [Concomitant]
  10. ROBITUSSIN (GUAIFENESIN) [Concomitant]
  11. SLOW FE (FERROUS SULFATE) [Concomitant]
  12. SUDAFED PE (PHENYLEPHRINE HYDROCHLORIDE) [Concomitant]
  13. SYSTANE (RHINARIS) [Concomitant]
  14. ZYRTEC (CETIRIZINE HYDROCHLORIDE) [Concomitant]

REACTIONS (7)
  - Drug dose omission [None]
  - Feeling abnormal [None]
  - Flatulence [None]
  - Abdominal distension [None]
  - Dyspepsia [None]
  - Epigastric discomfort [None]
  - Diarrhoea [None]
